FAERS Safety Report 16788757 (Version 1)
Quarter: 2019Q3

REPORT INFORMATION
  Report Type: Spontaneous
  Country: CO (occurrence: CO)
  Receive Date: 20190910
  Receipt Date: 20190910
  Transmission Date: 20191005
  Serious: Yes (Hospitalization)
  Sender: FDA-Public Use
  Company Number: CO-HRAPH01-201900359

PATIENT
  Sex: Male

DRUGS (3)
  1. LYSODREN [Suspect]
     Active Substance: MITOTANE
     Indication: ADRENOCORTICAL CARCINOMA
     Route: 048
     Dates: start: 201901, end: 201902
  2. PREDNISOLONE 5 MG [Concomitant]
     Active Substance: PREDNISOLONE
     Indication: PRODUCT USED FOR UNKNOWN INDICATION
     Dosage: 5 MG EVERY 8 HOURS
  3. LYSODREN [Suspect]
     Active Substance: MITOTANE
     Indication: ADRENOCORTICAL CARCINOMA
     Route: 048
     Dates: start: 201902

REACTIONS (5)
  - Dehydration [Unknown]
  - Asthenia [Unknown]
  - Nausea [Unknown]
  - Malnutrition [Unknown]
  - Vomiting [Unknown]

NARRATIVE: CASE EVENT DATE: 2019
